FAERS Safety Report 7161063-6 (Version None)
Quarter: 2010Q4

REPORT INFORMATION
  Report Type: 
  Country: None (occurrence: None)
  Receive Date: 20101214
  Receipt Date: 20101129
  Transmission Date: 20110411
  Serious: Yes (Other)
  Sender: FDA-Public Use
  Company Number: DE-AMGEN-US439693

PATIENT

DRUGS (5)
  1. ENBREL [Suspect]
     Dosage: 50 MG, QWK
     Route: 058
     Dates: start: 20100301
  2. PREDNISOLONE [Concomitant]
  3. TREXALL [Concomitant]
  4. IBUPROFEN STADA [Concomitant]
     Indication: RHEUMATOID ARTHRITIS
  5. OMEBETA [Concomitant]

REACTIONS (2)
  - VISION BLURRED [None]
  - VITREOUS OPACITIES [None]
